FAERS Safety Report 8942969 (Version 1)
Quarter: 2012Q4

REPORT INFORMATION
  Report Type: 
  Country: NL (occurrence: NL)
  Receive Date: 20121204
  Receipt Date: 20121204
  Transmission Date: 20130627
  Serious: Yes (Life-Threatening)
  Sender: FDA-Public Use
  Company Number: NL-PFIZER INC-2012301328

PATIENT

DRUGS (1)
  1. LYRICA [Suspect]
     Dosage: 75 mg, UNK

REACTIONS (1)
  - Terminal state [Unknown]
